FAERS Safety Report 7783900-4 (Version None)
Quarter: 2011Q3

REPORT INFORMATION
  Report Type: 
  Country: None (occurrence: None)
  Receive Date: 20110928
  Receipt Date: 20110524
  Transmission Date: 20111222
  Serious: Yes (Other)
  Sender: FDA-Public Use
  Company Number: FR-GLAXOSMITHKLINE-B0721767A

PATIENT
  Sex: Female

DRUGS (13)
  1. PNEUMO 23 [Concomitant]
     Indication: PROPHYLAXIS
  2. ZOLPIDEM [Concomitant]
     Dosage: 1TAB PER DAY
     Route: 065
     Dates: start: 20090301
  3. PERGOLIDE [Concomitant]
     Indication: PRODUCT USED FOR UNKNOWN INDICATION
     Route: 065
     Dates: start: 20011201, end: 20100401
  4. AUGMENTIN '125' [Concomitant]
     Dosage: 2TAB THREE TIMES PER DAY
     Route: 048
     Dates: start: 20090901, end: 20090901
  5. IMOVANE [Concomitant]
     Route: 065
     Dates: start: 20090901
  6. REQUIP [Suspect]
     Indication: PARKINSON'S DISEASE
     Route: 048
     Dates: start: 20100401, end: 20110401
  7. MODOPAR [Concomitant]
     Indication: PARKINSON'S DISEASE
     Dosage: 125MG SEVEN TIMES PER DAY
     Route: 048
     Dates: end: 20100401
  8. MUXOL [Concomitant]
     Dosage: 1TBS TWICE PER DAY
     Route: 065
     Dates: start: 20090901
  9. ACETAMINOPHEN [Concomitant]
     Route: 048
     Dates: start: 20090901
  10. MYOLASTAN [Concomitant]
     Route: 065
     Dates: start: 20081001
  11. LEXOMIL [Concomitant]
     Route: 065
     Dates: start: 20100201
  12. STALEVO 100 [Suspect]
     Indication: PARKINSON'S DISEASE
     Route: 048
     Dates: start: 20090301
  13. ESCITALOPRAM OXALATE [Concomitant]
     Route: 065
     Dates: start: 20100401

REACTIONS (6)
  - SUICIDAL IDEATION [None]
  - PARKINSON'S DISEASE [None]
  - CONDITION AGGRAVATED [None]
  - DEPRESSION [None]
  - PATHOLOGICAL GAMBLING [None]
  - INAPPROPRIATE SCHEDULE OF DRUG ADMINISTRATION [None]
